FAERS Safety Report 12105512 (Version 2)
Quarter: 2016Q1

REPORT INFORMATION
  Report Type: Spontaneous
  Country: AU (occurrence: AU)
  Receive Date: 20160223
  Receipt Date: 20160330
  Transmission Date: 20160526
  Serious: Yes (Other)
  Sender: FDA-Public Use
  Company Number: AU-PFIZER INC-2016098290

PATIENT
  Sex: Female

DRUGS (2)
  1. NEURONTIN [Suspect]
     Active Substance: GABAPENTIN
     Indication: RESTLESS LEGS SYNDROME
     Dosage: 200 MG, UNK
  2. NEURONTIN [Suspect]
     Active Substance: GABAPENTIN
     Indication: PERIODIC LIMB MOVEMENT DISORDER
     Dosage: 100 MG, DAILY NOCTE
     Route: 048

REACTIONS (10)
  - Product use issue [Unknown]
  - Paralysis [Recovered/Resolved]
  - Fatigue [Unknown]
  - Memory impairment [Recovered/Resolved]
  - Physical disability [Recovered/Resolved]
  - Euphoric mood [Unknown]
  - Speech disorder [Recovered/Resolved]
  - Eating disorder [Recovering/Resolving]
  - Feeling abnormal [Unknown]
  - Dyspepsia [Recovering/Resolving]
